FAERS Safety Report 7660727-5 (Version None)
Quarter: 2011Q3

REPORT INFORMATION
  Report Type: 
  Country: None (occurrence: None)
  Receive Date: 20110805
  Receipt Date: 20101122
  Transmission Date: 20111222
  Serious: No
  Sender: FDA-Public Use
  Company Number: US-ABBOTT-10P-163-0687213-00

PATIENT
  Sex: Female
  Weight: 74.91 kg

DRUGS (6)
  1. LEVEMIR [Concomitant]
     Indication: PRODUCT USED FOR UNKNOWN INDICATION
     Route: 048
  2. NIASPAN [Suspect]
     Indication: HIGH DENSITY LIPOPROTEIN DECREASED
     Dosage: AT BEDTIME
     Route: 048
     Dates: start: 20101020
  3. NIASPAN [Suspect]
     Dosage: AT BEDTIME
     Route: 048
  4. OXYCONTIN [Concomitant]
     Indication: PAIN IN EXTREMITY
     Route: 048
  5. ASPIRIN [Concomitant]
     Indication: PRODUCT USED FOR UNKNOWN INDICATION
     Route: 048
  6. NOVOLOG [Concomitant]
     Indication: PRODUCT USED FOR UNKNOWN INDICATION
     Route: 058

REACTIONS (5)
  - PRURITUS [None]
  - FEELING HOT [None]
  - ERYTHEMA [None]
  - PARAESTHESIA [None]
  - FLUSHING [None]
